FAERS Safety Report 6575062-6 (Version None)
Quarter: 2010Q1

REPORT INFORMATION
  Report Type: 
  Country: None (occurrence: None)
  Receive Date: 20100209
  Receipt Date: 20100201
  Transmission Date: 20100710
  Serious: Yes (Hospitalization)
  Sender: FDA-Public Use
  Company Number: NZ-ASTRAZENECA-2010SE04561

PATIENT
  Age: 24605 Day
  Sex: Male

DRUGS (5)
  1. OMEPRAZOLE [Suspect]
     Dosage: DAILY
     Route: 048
     Dates: start: 20060928
  2. FLOXACILLIN SODIUM [Suspect]
     Route: 065
  3. CAPECITABINE [Suspect]
     Indication: COLON CANCER
     Dosage: 42 GM
     Route: 048
     Dates: start: 20060908
  4. OXALIPLATIN [Concomitant]
     Indication: COLON CANCER
     Route: 042
     Dates: start: 20060908
  5. BEVACIZUMAB [Concomitant]
     Indication: COLON CANCER
     Route: 042
     Dates: start: 20060909

REACTIONS (5)
  - ABDOMINAL PAIN [None]
  - BLOOD CREATINE PHOSPHOKINASE INCREASED [None]
  - DEHYDRATION [None]
  - DIARRHOEA [None]
  - RENAL FAILURE ACUTE [None]
